FAERS Safety Report 6582652-3 (Version None)
Quarter: 2010Q1

REPORT INFORMATION
  Report Type: 
  Country: None (occurrence: None)
  Receive Date: 20100216
  Receipt Date: 20100208
  Transmission Date: 20100710
  Serious: Yes (Hospitalization, Other)
  Sender: FDA-Public Use
  Company Number: US-SANOFI-AVENTIS-A03200904053

PATIENT
  Age: 38 Year
  Sex: Male
  Weight: 72 kg

DRUGS (5)
  1. ZOLPIDEM TARTRATE [Suspect]
     Indication: INSOMNIA
     Dosage: UNIT DOSE: 12.5 MG
     Route: 048
     Dates: start: 20090611
  2. AMITRIPTYLINE HCL [Suspect]
     Indication: SLEEP DISORDER
     Route: 048
  3. COLESTID [Concomitant]
     Dosage: UNIT DOSE: 1 G
     Route: 048
  4. COLESTID [Concomitant]
     Indication: ABDOMINAL PAIN
     Dosage: UNIT DOSE: 1 G
     Route: 048
  5. OXYCODONE HCL [Concomitant]
     Indication: PAIN
     Dosage: DOSE TEXT: ONE TABLET EVERY FOUR HOURS AS NEEDED FOR SEVERE PAINUNIT DOSE: 5 MG
     Route: 048

REACTIONS (13)
  - AGGRESSION [None]
  - AGITATION [None]
  - AMMONIA INCREASED [None]
  - CONFUSIONAL STATE [None]
  - DELIRIUM [None]
  - ENCEPHALOPATHY [None]
  - HALLUCINATION [None]
  - HEAD INJURY [None]
  - PSYCHOTIC DISORDER [None]
  - RESPIRATORY FAILURE [None]
  - SOMNAMBULISM [None]
  - SUICIDAL IDEATION [None]
  - UNRESPONSIVE TO STIMULI [None]
